FAERS Safety Report 4945511-5 (Version None)
Quarter: 2006Q1

REPORT INFORMATION
  Report Type: 
  Country: None (occurrence: None)
  Receive Date: 20060316
  Receipt Date: 20050111
  Transmission Date: 20060701
  Serious: Yes (Hospitalization)
  Sender: FDA-Public Use
  Company Number: US-MERCK-0501USA01202

PATIENT
  Age: 55 Year
  Sex: Female
  Weight: 144 kg

DRUGS (7)
  1. VIOXX [Suspect]
     Indication: ARTHRITIS
     Route: 048
     Dates: start: 20010915, end: 20040808
  2. VIOXX [Concomitant]
     Route: 048
  3. VIOXX [Concomitant]
     Route: 048
  4. DIOVAN [Concomitant]
     Route: 048
  5. DIOVAN [Concomitant]
     Route: 048
  6. DIOVAN [Concomitant]
     Route: 048
  7. ZYRTEC [Concomitant]
     Route: 048

REACTIONS (16)
  - ANGINA PECTORIS [None]
  - APPENDICECTOMY [None]
  - ARTHRITIS INFECTIVE [None]
  - ASTHMA [None]
  - CARDIAC FAILURE CONGESTIVE [None]
  - CEREBROVASCULAR ACCIDENT [None]
  - DEVICE RELATED INFECTION [None]
  - DRUG HYPERSENSITIVITY [None]
  - EMOTIONAL DISTRESS [None]
  - FOOD ALLERGY [None]
  - HAEMOGLOBIN DECREASED [None]
  - HYSTERECTOMY [None]
  - KNEE ARTHROPLASTY [None]
  - NEURALGIA [None]
  - OSTEOARTHRITIS [None]
  - SLEEP APNOEA SYNDROME [None]
